FAERS Safety Report 22209767 (Version 3)
Quarter: 2023Q2

REPORT INFORMATION
  Report Type: Other
  Country: US (occurrence: None)
  Receive Date: 20230414
  Receipt Date: 20230421
  Transmission Date: 20230721
  Serious: Yes (Other)
  Sender: FDA-Public Use
  Company Number: US-ROCHE-3326853

PATIENT
  Age: 62 Year
  Sex: Female

DRUGS (1)
  1. OCREVUS [Suspect]
     Active Substance: OCRELIZUMAB
     Indication: Multiple sclerosis
     Dosage: INFUSE 600MG INTRAVENOUSLY EVERY 180 DAY(S)?MOST RECENT DOSE OF OCREVUS WAS ON 26/OCT/2022; INFUSE 6
     Route: 042
     Dates: start: 20190415

REACTIONS (1)
  - Postoperative wound infection [Unknown]
